FAERS Safety Report 20179485 (Version 1)
Quarter: 2021Q4

REPORT INFORMATION
  Report Type: Spontaneous
  Country: DE (occurrence: DE)
  Receive Date: 20211214
  Receipt Date: 20211214
  Transmission Date: 20220303
  Serious: Yes (Life-Threatening, Hospitalization, Other)
  Sender: FDA-Public Use
  Company Number: DE-ADRED-07591-01

PATIENT
  Age: 89 Year
  Sex: Female
  Weight: 65 kg

DRUGS (7)
  1. APIXABAN [Suspect]
     Active Substance: APIXABAN
     Indication: Product used for unknown indication
     Dosage: 2.5 MILLIGRAM, BID
     Route: 048
  2. FUROSEMIDE [Suspect]
     Active Substance: FUROSEMIDE
     Indication: Product used for unknown indication
     Dosage: 20 MILLIGRAM, QD
     Route: 048
  3. VALSARTAN [Suspect]
     Active Substance: VALSARTAN
     Indication: Product used for unknown indication
     Dosage: 160 MILLIGRAM, QD
     Route: 048
  4. ALBUTEROL [Concomitant]
     Active Substance: ALBUTEROL
     Indication: Product used for unknown indication
     Dosage: BEDARF
     Route: 065
  5. METAMIZOL [Concomitant]
     Active Substance: METAMIZOLE SODIUM
     Indication: Product used for unknown indication
     Dosage: BEDARF
     Route: 065
  6. Viani forte 50?g/500?g Diskus [Concomitant]
     Indication: Product used for unknown indication
     Dosage: 500|50 ?G, 1-0-0-0
     Route: 055
  7. Budesonid Easyhaler 0,2mg/Dosis [Concomitant]
     Indication: Product used for unknown indication
     Dosage: 0.2 MILLIGRAM, BID
     Route: 055

REACTIONS (6)
  - Haematoma [Unknown]
  - Fracture [Unknown]
  - Fall [Unknown]
  - Headache [Unknown]
  - Depressed level of consciousness [Unknown]
  - Memory impairment [Unknown]
